FAERS Safety Report 8415375-6 (Version None)
Quarter: 2012Q2

REPORT INFORMATION
  Report Type: 
  Country: None (occurrence: None)
  Receive Date: 20120606
  Receipt Date: 20120531
  Transmission Date: 20120825
  Serious: Yes (Hospitalization, Other)
  Sender: FDA-Public Use
  Company Number: PHHY2012SV042002

PATIENT
  Age: 79 Year
  Sex: Female

DRUGS (4)
  1. ZOLEDRONOC ACID [Suspect]
     Dosage: 5 MG, UNK
     Route: 042
     Dates: start: 20111001
  2. PANTOPRAZOLE [Concomitant]
  3. DIOVAN [Concomitant]
     Dosage: 320 MG, UNK
  4. ZOLEDRONOC ACID [Suspect]
     Indication: OSTEOPENIA
     Dosage: 5 MG, UNK
     Route: 042
     Dates: start: 20101001

REACTIONS (8)
  - HAEMATEMESIS [None]
  - GASTRIC ULCER [None]
  - EROSIVE OESOPHAGITIS [None]
  - VASOSPASM [None]
  - HEPARIN-INDUCED THROMBOCYTOPENIA [None]
  - NAUSEA [None]
  - PETECHIAE [None]
  - GASTRITIS EROSIVE [None]
